FAERS Safety Report 4340016-7 (Version None)
Quarter: 2004Q2

REPORT INFORMATION
  Report Type: 
  Country: None (occurrence: None)
  Receive Date: 20040416
  Receipt Date: 20040405
  Transmission Date: 20050107
  Serious: Yes (Other)
  Sender: FDA-Public Use
  Company Number: GB-BRISTOL-MYERS SQUIBB COMPANY-12550711

PATIENT
  Age: 33 Year
  Sex: Female
  Weight: 50 kg

DRUGS (4)
  1. NYSTATIN [Suspect]
     Indication: CANDIDIASIS
     Dosage: DOSAGE FORM=UNITS
     Route: 048
     Dates: start: 20030318, end: 20040323
  2. EVENING PRIMROSE OIL [Concomitant]
     Dates: start: 20040301, end: 20040318
  3. GINKGO BILOBA [Concomitant]
     Dates: start: 20040301, end: 20040318
  4. MULTI-VITAMINS [Concomitant]

REACTIONS (2)
  - MIGRAINE [None]
  - TUNNEL VISION [None]
